FAERS Safety Report 6772253-6 (Version None)
Quarter: 2010Q2

REPORT INFORMATION
  Report Type: 
  Country: None (occurrence: None)
  Receive Date: 20100616
  Receipt Date: 20090930
  Transmission Date: 20101027
  Serious: No
  Sender: FDA-Public Use
  Company Number: US-ASTRAZENECA-2009SE16919

PATIENT
  Age: 74 Year
  Sex: Male
  Weight: 64 kg

DRUGS (12)
  1. PULMICORT RESPULES [Suspect]
     Indication: CHRONIC OBSTRUCTIVE PULMONARY DISEASE
     Route: 055
  2. PULMICORT RESPULES [Suspect]
     Route: 055
  3. ASPIRIN [Concomitant]
  4. DIGOXIN [Concomitant]
  5. FLOMAX [Concomitant]
  6. FORADIL [Concomitant]
  7. GLYBURIDE AND METFORMIN HYDROCHLORIDE [Concomitant]
  8. LISINOPRIL [Concomitant]
  9. METOPROLOL [Concomitant]
  10. PRILOSEC [Concomitant]
  11. SPIRIVA [Concomitant]
  12. THEOPHYLLINE [Concomitant]

REACTIONS (1)
  - DYSPNOEA [None]
